FAERS Safety Report 10627187 (Version 4)
Quarter: 2017Q1

REPORT INFORMATION
  Report Type: Report from Study
  Country: US (occurrence: US)
  Receive Date: 20141204
  Receipt Date: 20170302
  Transmission Date: 20170428
  Serious: Yes (Hospitalization)
  Sender: FDA-Public Use
  Company Number: US-GLAXOSMITHKLINE-Z0023040A

PATIENT
  Age: 49 Year
  Sex: Male
  Weight: 89.4 kg

DRUGS (9)
  1. PALBOCICLIB CAPSULE [Suspect]
     Active Substance: PALBOCICLIB
     Indication: NEOPLASM
     Dosage: 100 MG, CYC
     Route: 048
     Dates: start: 20140709
  2. FENTANYL CITRATE. [Concomitant]
     Active Substance: FENTANYL CITRATE
     Indication: PAIN
     Route: 042
     Dates: start: 20140724, end: 20140724
  3. MORPHINE IMMEDIATE RELEASE [Concomitant]
     Indication: PAIN
     Route: 048
     Dates: start: 20140729, end: 20140729
  4. ACETYLSALICYLIC ACID (ASPIRIN) [Concomitant]
     Indication: PAIN
     Route: 048
     Dates: start: 20140726, end: 20140726
  5. ACETAMINOPHEN. [Concomitant]
     Active Substance: ACETAMINOPHEN
     Indication: PAIN
     Dosage: 1 DF, BID
     Route: 048
     Dates: start: 20140726, end: 20140726
  6. KCL IMMEDIATE RELEASE [Concomitant]
     Indication: FLUSHING
     Route: 048
     Dates: start: 20140728, end: 20140728
  7. TRAMETINIB TABLET [Suspect]
     Active Substance: TRAMETINIB
     Indication: NEOPLASM
     Dosage: 1.5 MG, QD
     Route: 048
     Dates: start: 20140709
  8. HYDROCODONE + APAP [Concomitant]
     Indication: PAIN
     Route: 048
     Dates: start: 20140724, end: 20140729
  9. STATEX (MORPHIN) [Concomitant]
     Indication: PAIN
     Route: 042
     Dates: start: 20140728, end: 20140728

REACTIONS (1)
  - Epistaxis [Recovered/Resolved]

NARRATIVE: CASE EVENT DATE: 20140723
